FAERS Safety Report 16088950 (Version 2)
Quarter: 2019Q3

REPORT INFORMATION
  Report Type: Spontaneous
  Country: US (occurrence: US)
  Receive Date: 20190319
  Receipt Date: 20190920
  Transmission Date: 20191004
  Serious: No
  Sender: FDA-Public Use
  Company Number: US-MYLANLABS-2019M1019614

PATIENT
  Sex: Female
  Weight: 82 kg

DRUGS (3)
  1. LIDOCAINE PATCH [Suspect]
     Active Substance: LIDOCAINE
     Indication: NEUROPATHY PERIPHERAL
     Dosage: 1 DOSAGE FORM, BID
     Route: 003
     Dates: start: 201902
  2. LIDOCAINE PATCH [Suspect]
     Active Substance: LIDOCAINE
     Indication: TISSUE INJURY
  3. LIDOCAINE PATCH [Suspect]
     Active Substance: LIDOCAINE
     Indication: ARTHRITIS
     Dosage: 2 DOSAGE FORM, BID
     Route: 003
     Dates: end: 2019

REACTIONS (4)
  - Product quality issue [Unknown]
  - Extra dose administered [Unknown]
  - Drug ineffective for unapproved indication [Unknown]
  - Product adhesion issue [Unknown]

NARRATIVE: CASE EVENT DATE: 201902
